FAERS Safety Report 5811336-1 (Version None)
Quarter: 2008Q3

REPORT INFORMATION
  Report Type: 
  Country: None (occurrence: None)
  Receive Date: 20080711
  Receipt Date: 20080701
  Transmission Date: 20090109
  Serious: Yes (Hospitalization, Other)
  Sender: FDA-Public Use
  Company Number: 2008-02098

PATIENT
  Age: 58 Year
  Sex: Male

DRUGS (20)
  1. VELCADE [Suspect]
     Indication: MULTIPLE MYELOMA
     Dosage: 2.6 MG, INTRAVENOUS
     Route: 042
     Dates: start: 20071109, end: 20080114
  2. CYCLOPHOSPHAMIDE [Suspect]
     Indication: MULTIPLE MYELOMA
     Dosage: 1800 MG, INTRAVENOUS
     Route: 042
     Dates: start: 20071109, end: 20080104
  3. DEXAMETHASONE TAB [Suspect]
     Indication: MULTIPLE MYELOMA
     Dosage: 40 MG, ORAL
     Route: 048
     Dates: start: 20071109, end: 20080115
  4. ETOPOSIDE [Suspect]
     Indication: MULTIPLE MYELOMA
     Dates: start: 20071109, end: 20080104
  5. ACETYLSALICYLIC ACID SRT [Concomitant]
  6. CARVEDILOL [Concomitant]
  7. ATACAND [Concomitant]
  8. LEXOTANIL (BROMAZEPAM) [Concomitant]
  9. POTASSIUM CHLORIDE [Concomitant]
  10. PREGABALIN (FOLIC ACID, FERROUS SULFATE EXSICCATED) [Concomitant]
  11. AMITRIPTYLINE HYDROCHLORIDE [Concomitant]
  12. CLONIDINE [Concomitant]
  13. METHADONE HCL [Concomitant]
  14. AMLODIPINE [Concomitant]
  15. PENTOXIFYLLINE [Concomitant]
  16. MULTIBIONTA (CYANOCOBALAMIN, RUTOSIDE, CALCIUM PANTOTHENATE, NICOTINA [Concomitant]
  17. NOVALGIN (METAMIZOLE SODIUM) [Concomitant]
  18. MAGNESIUM (MAGNESIUM) [Concomitant]
  19. PANTOPRAZOLE SODIUM [Concomitant]
  20. PAMIDRONATE DISODIUM [Suspect]

REACTIONS (4)
  - DEPRESSED MOOD [None]
  - EYELID PTOSIS [None]
  - POLYNEUROPATHY [None]
  - STEM CELL TRANSPLANT [None]
